FAERS Safety Report 5079059-7 (Version None)
Quarter: 2006Q3

REPORT INFORMATION
  Report Type: 
  Country: None (occurrence: None)
  Receive Date: 20060809
  Receipt Date: 20060727
  Transmission Date: 20061208
  Serious: Yes (Hospitalization)
  Sender: FDA-Public Use
  Company Number: 2006US001642

PATIENT
  Age: 4 Year
  Sex: Male

DRUGS (1)
  1. PROTOPIC [Suspect]
     Indication: DERMATITIS ATOPIC
     Dosage: TOPICAL
     Route: 061

REACTIONS (4)
  - IMMUNE SYSTEM DISORDER [None]
  - IMPETIGO [None]
  - INFECTION [None]
  - LYMPHADENOPATHY [None]
